FAERS Safety Report 22253387 (Version 3)
Quarter: 2025Q4

REPORT INFORMATION
  Report Type: Spontaneous
  Country: CA (occurrence: CA)
  Receive Date: 20230426
  Receipt Date: 20251001
  Transmission Date: 20260118
  Serious: Yes (Hospitalization, Other)
  Sender: AUROBINDO
  Company Number: CA-AUROBINDO-AUR-APL-2023-032163

PATIENT
  Age: 40 Year
  Sex: Male

DRUGS (4)
  1. BRIVARACETAM [Suspect]
     Active Substance: BRIVARACETAM
     Indication: Seizure
     Dosage: 100 MILLIGRAM
     Route: 048
  2. BRIVARACETAM [Suspect]
     Active Substance: BRIVARACETAM
     Dosage: 100 MILLIGRAM, TWO TIMES A DAY
     Route: 065
  3. BRIVARACETAM [Suspect]
     Active Substance: BRIVARACETAM
     Dosage: 75 MILLIGRAM, TWO TIMES A DAY
     Route: 065
  4. GABAPENTIN [Suspect]
     Active Substance: GABAPENTIN
     Indication: Product used for unknown indication
     Dosage: 600 MILLIGRAM, TWO TIMES A DAY
     Route: 065

REACTIONS (7)
  - Seizure [Unknown]
  - Fall [Unknown]
  - Contusion [Unknown]
  - Head injury [Unknown]
  - Off label use [Unknown]
  - Road traffic accident [Unknown]
  - Injury [Unknown]
